FAERS Safety Report 7816203-X (Version None)
Quarter: 2011Q4

REPORT INFORMATION
  Report Type: 
  Country: None (occurrence: None)
  Receive Date: 20111015
  Receipt Date: 20111003
  Transmission Date: 20120403
  Serious: Yes (Disabling)
  Sender: FDA-Public Use
  Company Number: FR-ROCHE-1001872

PATIENT
  Age: 30 Year
  Sex: Male

DRUGS (1)
  1. ISOTRETINOIN [Suspect]
     Indication: ACNE
     Route: 065
     Dates: start: 20020115, end: 20020630

REACTIONS (4)
  - CROHN'S DISEASE [None]
  - ABDOMINAL PAIN [None]
  - INFECTIOUS MONONUCLEOSIS [None]
  - INSOMNIA [None]
